FAERS Safety Report 10398509 (Version 1)
Quarter: 2014Q3

REPORT INFORMATION
  Report Type: Spontaneous
  Country: US (occurrence: US)
  Receive Date: 20140821
  Receipt Date: 20140821
  Transmission Date: 20150326
  Serious: No
  Sender: FDA-Public Use
  Company Number: US-TEVA-503604USA

PATIENT

DRUGS (1)
  1. QNASL [Suspect]
     Active Substance: BECLOMETHASONE DIPROPIONATE

REACTIONS (1)
  - Incorrect route of drug administration [Unknown]
